FAERS Safety Report 9681443 (Version 1)
Quarter: 2013Q4

REPORT INFORMATION
  Report Type: Spontaneous
  Country: US (occurrence: US)
  Receive Date: 20131111
  Receipt Date: 20131111
  Transmission Date: 20140711
  Serious: No
  Sender: FDA-Public Use
  Company Number: US-BAYER-2013-135900

PATIENT
  Age: 69 Year
  Sex: Male
  Weight: 95 kg

DRUGS (7)
  1. ALEVE TABLET [Suspect]
     Indication: BACK PAIN
     Dosage: 2 DF, UNK
     Route: 048
  2. CLONAZEPAM [Concomitant]
  3. BUPROPION [Concomitant]
  4. CALCIUM CITRATE [Concomitant]
  5. GALANTAMINE [Concomitant]
  6. ARIPIPRAZOLE [Concomitant]
  7. METOPROLOL [Concomitant]

REACTIONS (4)
  - Blood pressure increased [None]
  - Drug administration error [None]
  - Incorrect drug administration duration [None]
  - Abdominal discomfort [Recovered/Resolved]
